FAERS Safety Report 16499610 (Version 1)
Quarter: 2019Q2

REPORT INFORMATION
  Report Type: Spontaneous
  Country: US (occurrence: US)
  Receive Date: 20190520
  Receipt Date: 20190520
  Transmission Date: 20190711
  Serious: No
  Sender: FDA-Public Use
  Company Number: None

PATIENT
  Age: 94 Year
  Sex: Female

DRUGS (1)
  1. PROLIA [Suspect]
     Active Substance: DENOSUMAB
     Indication: OSTEOPOROSIS
     Dosage: ?          OTHER FREQUENCY:OTHER;?
     Route: 058

REACTIONS (3)
  - Musculoskeletal pain [None]
  - Herpes zoster [None]
  - Pain in extremity [None]

NARRATIVE: CASE EVENT DATE: 20190520
